FAERS Safety Report 15265977 (Version 1)
Quarter: 2018Q3

REPORT INFORMATION
  Report Type: Report from Study
  Country: BR (occurrence: BR)
  Receive Date: 20180810
  Receipt Date: 20180810
  Transmission Date: 20181010
  Serious: Yes (Hospitalization, Other)
  Sender: FDA-Public Use
  Company Number: BR-JNJFOC-20161121947

PATIENT
  Sex: Female
  Weight: 72 kg

DRUGS (6)
  1. FAMOTIDINE. [Concomitant]
     Active Substance: FAMOTIDINE
     Route: 065
  2. REMICADE [Suspect]
     Active Substance: INFLIXIMAB
     Indication: RHEUMATOID ARTHRITIS
     Route: 042
     Dates: start: 20140401
  3. FOLIC ACID. [Concomitant]
     Active Substance: FOLIC ACID
     Route: 065
  4. PREDNISONE. [Concomitant]
     Active Substance: PREDNISONE
     Route: 065
  5. RANITIDINE. [Concomitant]
     Active Substance: RANITIDINE
     Route: 065
  6. CHLOROQUINE DIPHOSPHATE [Concomitant]
     Active Substance: CHLOROQUINE PHOSPHATE
     Route: 065

REACTIONS (6)
  - Rheumatoid arthritis [Not Recovered/Not Resolved]
  - Drug ineffective [Unknown]
  - Tuberculosis [Recovered/Resolved]
  - Pneumonia [Recovered/Resolved]
  - Bronchitis [Recovering/Resolving]
  - Fall [Unknown]

NARRATIVE: CASE EVENT DATE: 2015
